FAERS Safety Report 6346516-2 (Version None)
Quarter: 2009Q3

REPORT INFORMATION
  Report Type: 
  Country: None (occurrence: None)
  Receive Date: 20090909
  Receipt Date: 20090827
  Transmission Date: 20100115
  Serious: Yes (Other)
  Sender: FDA-Public Use
  Company Number: US-ELI_LILLY_AND_COMPANY-US200908006380

PATIENT
  Sex: Female

DRUGS (3)
  1. FORTEO [Suspect]
     Dates: start: 20090701
  2. CALCIUM                                 /N/A/ [Concomitant]
  3. FISH OIL [Concomitant]

REACTIONS (2)
  - BLOOD IRON ABNORMAL [None]
  - LIVER FUNCTION TEST ABNORMAL [None]
